FAERS Safety Report 17200738 (Version 1)
Quarter: 2019Q4

REPORT INFORMATION
  Report Type: Spontaneous
  Country: FR (occurrence: FR)
  Receive Date: 20191226
  Receipt Date: 20191226
  Transmission Date: 20200122
  Serious: Yes (Other)
  Sender: FDA-Public Use
  Company Number: FR-TEVA-2019-FR-1157002

PATIENT
  Age: 67 Year
  Sex: Female

DRUGS (1)
  1. AMOXICILLINE TEVA 1 G, COMPRIM? DISPERSIBLE [Suspect]
     Active Substance: AMOXICILLIN
     Indication: INFECTION
     Dosage: 1 DOSAGE FORMS
     Route: 048
     Dates: start: 2017, end: 2017

REACTIONS (4)
  - Urticaria [Recovered/Resolved]
  - Face oedema [Recovered/Resolved]
  - Swelling [Recovered/Resolved]
  - Dyspnoea [Recovered/Resolved]

NARRATIVE: CASE EVENT DATE: 2017
